FAERS Safety Report 18570421 (Version 8)
Quarter: 2025Q2

REPORT INFORMATION
  Report Type: Spontaneous
  Country: US (occurrence: US)
  Receive Date: 20201202
  Receipt Date: 20250408
  Transmission Date: 20250717
  Serious: Yes (Death, Other)
  Sender: PFIZER
  Company Number: US-PFIZER INC-2018251040

PATIENT
  Age: 61 Year
  Sex: Male

DRUGS (3)
  1. XELJANZ XR [Suspect]
     Active Substance: TOFACITINIB CITRATE
     Dosage: 11 MG, DAILY
     Route: 048
  2. XELJANZ XR [Suspect]
     Active Substance: TOFACITINIB CITRATE
  3. GABAPENTIN [Concomitant]
     Active Substance: GABAPENTIN

REACTIONS (10)
  - Thrombosis [Fatal]
  - Spinal operation [Unknown]
  - Illness [Unknown]
  - Hypersensitivity [Unknown]
  - Sinus disorder [Unknown]
  - Pain in extremity [Unknown]
  - Joint swelling [Unknown]
  - Condition aggravated [Unknown]
  - Muscular weakness [Unknown]
  - Joint stiffness [Unknown]
